APPROVED DRUG PRODUCT: CARMUSTINE
Active Ingredient: CARMUSTINE
Strength: 100MG/VIAL
Dosage Form/Route: INJECTABLE;INJECTION
Application: A215368 | Product #001
Applicant: PHARMOBEDIENT CONSULTING LLC
Approved: Mar 3, 2023 | RLD: No | RS: No | Type: DISCN